FAERS Safety Report 8256474-1 (Version None)
Quarter: 2012Q2

REPORT INFORMATION
  Report Type: 
  Country: None (occurrence: None)
  Receive Date: 20120403
  Receipt Date: 20120326
  Transmission Date: 20120825
  Serious: Yes (Other)
  Sender: FDA-Public Use
  Company Number: US-AMGEN-USASP2012019444

PATIENT
  Sex: Female

DRUGS (2)
  1. ARANESP [Suspect]
     Indication: ANAEMIA
     Dosage: UNK
  2. INDERAL [Concomitant]

REACTIONS (9)
  - PANIC REACTION [None]
  - BLOOD GLUCOSE DECREASED [None]
  - HYPERHIDROSIS [None]
  - HEADACHE [None]
  - PALPITATIONS [None]
  - TREMOR [None]
  - FATIGUE [None]
  - BLOOD PRESSURE INCREASED [None]
  - SOMNOLENCE [None]
